FAERS Safety Report 8010350-8 (Version None)
Quarter: 2011Q4

REPORT INFORMATION
  Report Type: 
  Country: None (occurrence: None)
  Receive Date: 20111228
  Receipt Date: 20111220
  Transmission Date: 20120403
  Serious: Yes (Hospitalization)
  Sender: FDA-Public Use
  Company Number: FR-JNJFOC-20111209173

PATIENT
  Sex: Male

DRUGS (10)
  1. OXAZEPAM [Suspect]
     Indication: PRODUCT USED FOR UNKNOWN INDICATION
     Route: 048
  2. PLAVIX [Concomitant]
     Route: 048
     Dates: start: 20110503
  3. CYMBALTA [Concomitant]
     Route: 048
  4. LEVEMIR [Concomitant]
     Route: 058
     Dates: start: 20110503
  5. FERROUS SULFATE TAB [Concomitant]
     Route: 048
     Dates: start: 20110503
  6. PROPRANOLOL [Concomitant]
     Indication: SINUS TACHYCARDIA
     Route: 048
     Dates: start: 20110503
  7. NOVORAPID [Concomitant]
     Route: 058
     Dates: start: 20110503
  8. INDAPAMIDE [Concomitant]
     Dosage: 2MG/0.625MG
     Route: 048
     Dates: start: 20110503
  9. RISPERDAL [Suspect]
     Indication: PRODUCT USED FOR UNKNOWN INDICATION
     Route: 048
  10. NEXIUM [Concomitant]
     Route: 048
     Dates: start: 20110503

REACTIONS (2)
  - PNEUMONIA ASPIRATION [None]
  - ALTERED STATE OF CONSCIOUSNESS [None]
